FAERS Safety Report 12669819 (Version 1)
Quarter: 2016Q3

REPORT INFORMATION
  Report Type: Spontaneous
  Country: US (occurrence: US)
  Receive Date: 20160819
  Receipt Date: 20160819
  Transmission Date: 20161109
  Serious: Yes (Hospitalization)
  Sender: FDA-Public Use
  Company Number: US-BAYER-2016-160481

PATIENT
  Age: 1 Year
  Sex: Female
  Weight: 6.8 kg

DRUGS (2)
  1. IBUPROFEN. [Concomitant]
     Active Substance: IBUPROFEN
  2. COPPERTONE KIDS SPF 55 [Suspect]
     Active Substance: AVOBENZONE\HOMOSALATE\OCTISALATE\OCTOCRYLENE\OXYBENZONE
     Indication: PROPHYLAXIS
     Dosage: OTHER FREQUENCY
     Route: 061
     Dates: start: 20160801, end: 20160801

REACTIONS (7)
  - Skin exfoliation [Recovering/Resolving]
  - Application site erythema [Recovering/Resolving]
  - Skin discolouration [Not Recovered/Not Resolved]
  - Wrong technique in product usage process [None]
  - Screaming [Recovered/Resolved]
  - Chemical injury [Recovering/Resolving]
  - Photosensitivity reaction [None]

NARRATIVE: CASE EVENT DATE: 20160801
